FAERS Safety Report 5327636-8 (Version None)
Quarter: 2007Q2

REPORT INFORMATION
  Report Type: 
  Country: None (occurrence: None)
  Receive Date: 20070517
  Receipt Date: 20070515
  Transmission Date: 20071010
  Serious: Yes (Hospitalization)
  Sender: FDA-Public Use
  Company Number: A0651404A

PATIENT
  Age: 62 Year
  Sex: Female

DRUGS (2)
  1. REQUIP [Suspect]
     Indication: RESTLESS LEGS SYNDROME
     Dosage: 2MG PER DAY
     Route: 048
     Dates: start: 20060101, end: 20070101
  2. NO CONCURRENT MEDICATION [Concomitant]

REACTIONS (7)
  - ADVERSE DRUG REACTION [None]
  - CARDIAC ARREST [None]
  - HEAD INJURY [None]
  - LOSS OF CONSCIOUSNESS [None]
  - LOWER LIMB FRACTURE [None]
  - PERIORBITAL HAEMATOMA [None]
  - VOMITING [None]
